FAERS Safety Report 13870305 (Version 2)
Quarter: 2017Q3

REPORT INFORMATION
  Report Type: Report from Study
  Country: US (occurrence: US)
  Receive Date: 20170815
  Receipt Date: 20170825
  Transmission Date: 20171127
  Serious: Yes (Hospitalization)
  Sender: FDA-Public Use
  Company Number: US-ACTELION-A-NJ2017-158057

PATIENT
  Age: 46 Year
  Sex: Female
  Weight: 105.21 kg

DRUGS (4)
  1. ADCIRCA [Concomitant]
     Active Substance: TADALAFIL
  2. GLUCOTROL [Concomitant]
     Active Substance: GLIPIZIDE
  3. UPTRAVI [Suspect]
     Active Substance: SELEXIPAG
     Indication: PULMONARY HYPERTENSION
     Dosage: 400 MCG AM, 600 MCG PM
     Route: 048
     Dates: start: 20170530
  4. SPIRONOLACTONE. [Concomitant]
     Active Substance: SPIRONOLACTONE

REACTIONS (1)
  - Stoma site abscess [Recovered/Resolved]

NARRATIVE: CASE EVENT DATE: 20170726
